FAERS Safety Report 20697589 (Version 5)
Quarter: 2022Q3

REPORT INFORMATION
  Report Type: Other
  Country: CH (occurrence: None)
  Receive Date: 20220411
  Receipt Date: 20220713
  Transmission Date: 20221026
  Serious: Yes (Death, Hospitalization, Other)
  Sender: FDA-Public Use
  Company Number: CH-ROCHE-3064779

PATIENT
  Age: 56 Year
  Sex: Female

DRUGS (1)
  1. OCREVUS [Suspect]
     Active Substance: OCRELIZUMAB
     Indication: Multiple sclerosis
     Dosage: 09/FEB/2021, 600 MG
     Route: 042
     Dates: start: 20200401

REACTIONS (35)
  - Large intestinal stenosis [Not Recovered/Not Resolved]
  - Clostridium difficile colitis [Fatal]
  - Intestinal ischaemia [Fatal]
  - Haemothorax [Unknown]
  - Pericardial haemorrhage [Unknown]
  - Arteriosclerosis coronary artery [Unknown]
  - Pancreatitis [Unknown]
  - Laryngeal oedema [Unknown]
  - Gastric haemorrhage [Unknown]
  - Embolism venous [Unknown]
  - COVID-19 pneumonia [Unknown]
  - Ileus paralytic [Unknown]
  - Haemoperitoneum [Unknown]
  - Pericardial effusion [Unknown]
  - Septic shock [Unknown]
  - Disseminated intravascular coagulation [Unknown]
  - Ascites [Unknown]
  - Thrombocytopenia [Unknown]
  - Embolism venous [Unknown]
  - Skin haemorrhage [Unknown]
  - Pleural effusion [Unknown]
  - Generalised oedema [Unknown]
  - Gastrointestinal inflammation [Unknown]
  - Petechiae [Unknown]
  - Coagulopathy [Unknown]
  - International normalised ratio increased [Unknown]
  - Activated partial thromboplastin time prolonged [Unknown]
  - Venous thrombosis [Unknown]
  - Coronary artery disease [Unknown]
  - Arteriosclerosis [Unknown]
  - Right atrial dilatation [Unknown]
  - Oedema [Unknown]
  - Emphysema [Unknown]
  - Pancreatic fibrosis [Unknown]
  - Nervous system disorder [Unknown]

NARRATIVE: CASE EVENT DATE: 20220128
